FAERS Safety Report 16817993 (Version 1)
Quarter: 2019Q3

REPORT INFORMATION
  Report Type: Spontaneous
  Country: FR (occurrence: FR)
  Receive Date: 20190917
  Receipt Date: 20190917
  Transmission Date: 20191005
  Serious: Yes (Hospitalization)
  Sender: FDA-Public Use
  Company Number: FR-MYLANLABS-2019M1086762

PATIENT
  Age: 66 Year
  Sex: Male
  Weight: 70 kg

DRUGS (15)
  1. SEROPLEX [Concomitant]
     Active Substance: ESCITALOPRAM OXALATE
     Dosage: UNK UNK, QD
     Route: 048
  2. LEVOTHYROX [Concomitant]
     Active Substance: LEVOTHYROXINE
     Dosage: UNK UNK, QD
     Route: 048
  3. PLAQUENIL [Concomitant]
     Active Substance: HYDROXYCHLOROQUINE SULFATE
     Dosage: 400 MILLIGRAM, QD
     Route: 048
  4. OXYCONTIN [Concomitant]
     Active Substance: OXYCODONE HYDROCHLORIDE
     Dosage: 80 MILLIGRAM, QD
     Route: 048
  5. TEMESTA                            /00273201/ [Concomitant]
     Active Substance: LORAZEPAM
     Dosage: 2.5 MILLIGRAM, QD
     Route: 048
  6. SOLUPRED                           /00016217/ [Concomitant]
     Active Substance: PREDNISOLONE SODIUM METAZOATE
     Dosage: UNK UNK, QD
     Route: 048
  7. CISPLATIN MYLAN [Suspect]
     Active Substance: CISPLATIN
     Indication: METASTATIC BRONCHIAL CARCINOMA
     Dosage: 1 DOSAGE FORM, CYCLE
     Route: 041
     Dates: start: 20190107, end: 20190107
  8. TRANSIPEG                          /00754501/ [Concomitant]
     Active Substance: POLYETHYLENE GLYCOL 3350
     Dosage: UNK UNK, QD
     Route: 048
  9. INIPOMP [Concomitant]
     Active Substance: PANTOPRAZOLE SODIUM
     Dosage: UNK
     Route: 048
  10. ZYPREXA [Concomitant]
     Active Substance: OLANZAPINE
     Dosage: UNK
     Route: 048
  11. FRAGMINE [Concomitant]
     Active Substance: DALTEPARIN SODIUM
     Dosage: UNK UNK, QD
     Route: 058
  12. CARBOPLATINE [Suspect]
     Active Substance: CARBOPLATIN
     Indication: METASTATIC BRONCHIAL CARCINOMA
     Dosage: 1 DOSAGE FORM, CYCLE
     Route: 041
     Dates: start: 20190128, end: 20190128
  13. PACLITAXEL KABI [Suspect]
     Active Substance: PACLITAXEL
     Indication: METASTATIC BRONCHIAL CARCINOMA
     Dosage: 1 DOSAGE FORM, CYCLE
     Route: 041
     Dates: start: 20190128, end: 20190207
  14. DOCETAXEL ACCORD [Suspect]
     Active Substance: DOCETAXEL
     Indication: METASTATIC BRONCHIAL CARCINOMA
     Dosage: 1 DOSAGE FORM, CYCLE
     Route: 041
     Dates: start: 20190107, end: 20190107
  15. PAROXETINE. [Concomitant]
     Active Substance: PAROXETINE
     Dosage: UNK
     Route: 048

REACTIONS (1)
  - Pericardial effusion [Recovered/Resolved]

NARRATIVE: CASE EVENT DATE: 20190209
